FAERS Safety Report 16145893 (Version 1)
Quarter: 2019Q2

REPORT INFORMATION
  Report Type: Spontaneous
  Country: SE (occurrence: SE)
  Receive Date: 20190402
  Receipt Date: 20190402
  Transmission Date: 20190711
  Serious: Yes (Life-Threatening, Hospitalization)
  Sender: FDA-Public Use
  Company Number: SE-TEVA-2019-SE-1031513

PATIENT
  Age: 93 Year
  Sex: Male
  Weight: 72 kg

DRUGS (2)
  1. PREDNISOLONE. [Suspect]
     Active Substance: PREDNISOLONE
     Dosage: 5 DOSAGE FORMS DAILY; 5 TABLETS FOR 8 DAYS A TOTAL OF 40 TABLETS
     Dates: start: 20150612, end: 20150620
  2. PULMICORT TURBUHALER [Concomitant]
     Active Substance: BUDESONIDE
     Dates: start: 20000101

REACTIONS (2)
  - Cardiac fibrillation [Not Recovered/Not Resolved]
  - Intra-abdominal fluid collection [Not Recovered/Not Resolved]

NARRATIVE: CASE EVENT DATE: 20150620
